FAERS Safety Report 6425114-6 (Version None)
Quarter: 2009Q4

REPORT INFORMATION
  Report Type: 
  Country: None (occurrence: None)
  Receive Date: 20091102
  Receipt Date: 20091102
  Transmission Date: 20100525
  Serious: Yes (Life-Threatening)
  Sender: FDA-Public Use
  Company Number: None

PATIENT
  Age: 43 Year
  Sex: Female
  Weight: 110.2241 kg

DRUGS (1)
  1. LUNESTA [Suspect]
     Indication: INSOMNIA
     Dosage: 1 SLEEP PO
     Route: 048

REACTIONS (4)
  - NASAL CONGESTION [None]
  - PRODUCT TASTE ABNORMAL [None]
  - SLEEP DISORDER [None]
  - SOMNOLENCE [None]
